FAERS Safety Report 19031563 (Version 1)
Quarter: 2021Q1

REPORT INFORMATION
  Report Type: Spontaneous
  Country: IT (occurrence: IT)
  Receive Date: 20210319
  Receipt Date: 20210319
  Transmission Date: 20210420
  Serious: Yes (Other)
  Sender: FDA-Public Use
  Company Number: IT-TEVA-2021-IT-1889545

PATIENT
  Age: 62 Year
  Sex: Male

DRUGS (2)
  1. BICALUTAMIDE SUN [Concomitant]
     Dosage: 50MG
     Route: 048
  2. TADALAFIL TEVA [Suspect]
     Active Substance: TADALAFIL
     Dosage: 5MG
     Route: 048

REACTIONS (3)
  - Mastitis [Not Recovered/Not Resolved]
  - Dyspepsia [Not Recovered/Not Resolved]
  - Pain [Not Recovered/Not Resolved]

NARRATIVE: CASE EVENT DATE: 20210201
